FAERS Safety Report 8290362-X (Version None)
Quarter: 2012Q2

REPORT INFORMATION
  Report Type: 
  Country: None (occurrence: None)
  Receive Date: 20120417
  Receipt Date: 20120404
  Transmission Date: 20120825
  Serious: Yes (Hospitalization, Other)
  Sender: FDA-Public Use
  Company Number: JP-ELI_LILLY_AND_COMPANY-JP201203002555

PATIENT
  Age: 80 Year
  Sex: Female

DRUGS (12)
  1. ZOLPIDEM [Concomitant]
     Dosage: UNK
     Route: 048
  2. LANSOPRAZOLE [Concomitant]
     Dosage: UNK
     Route: 048
  3. MUCOSTA [Concomitant]
     Dosage: UNK
     Route: 048
  4. ZYPREXA [Suspect]
     Indication: BIPOLAR DISORDER
     Route: 048
  5. STROCAIN [Concomitant]
     Dosage: UNK
  6. AVAPRO [Concomitant]
     Dosage: UNK
     Route: 048
  7. ATELEC [Concomitant]
     Dosage: UNK
  8. GASMOTIN [Concomitant]
     Dosage: UNK
     Route: 048
  9. ZYPREXA [Suspect]
     Dosage: 10 MG, QD
     Route: 048
     Dates: start: 20111209, end: 20120217
  10. LITHIUM CARBONATE [Concomitant]
     Dosage: UNK
     Route: 048
     Dates: end: 20120220
  11. MAGMITT [Concomitant]
     Dosage: UNK
     Route: 048
  12. ETHYL ICOSAPENTATE [Concomitant]
     Dosage: UNK

REACTIONS (2)
  - INFECTION [None]
  - NEUROLEPTIC MALIGNANT SYNDROME [None]
